FAERS Safety Report 5464189-8 (Version None)
Quarter: 2007Q3

REPORT INFORMATION
  Report Type: 
  Country: None (occurrence: None)
  Receive Date: 20070921
  Receipt Date: 20070913
  Transmission Date: 20080115
  Serious: Yes (Other)
  Sender: FDA-Public Use
  Company Number: GB-AVENTIS-200718476GDDC

PATIENT
  Sex: Female

DRUGS (1)
  1. CLOMID [Suspect]
     Indication: INFERTILITY
     Dosage: DOSE: UNK

REACTIONS (1)
  - MALIGNANT OVARIAN CYST [None]
